FAERS Safety Report 25875983 (Version 3)
Quarter: 2025Q4

REPORT INFORMATION
  Report Type: Spontaneous
  Country: EU (occurrence: EU)
  Receive Date: 20251003
  Receipt Date: 20251024
  Transmission Date: 20260118
  Serious: Yes (Other)
  Sender: CELLTRION
  Company Number: None

PATIENT

DRUGS (1)
  1. STEQEYMA [Suspect]
     Active Substance: USTEKINUMAB-STBA
     Indication: Psoriasis
     Dosage: 45 MILLIGRAM EVERY 12 WEEKS
     Route: 065
     Dates: start: 20250521, end: 20250521

REACTIONS (2)
  - Psoriasis [Not Recovered/Not Resolved]
  - Product substitution issue [Not Recovered/Not Resolved]

NARRATIVE: CASE EVENT DATE: 20250601
